FAERS Safety Report 4364729-6 (Version None)
Quarter: 2004Q2

REPORT INFORMATION
  Report Type: 
  Country: None (occurrence: None)
  Receive Date: 20040518
  Receipt Date: 20040123
  Transmission Date: 20050107
  Serious: No
  Sender: FDA-Public Use
  Company Number: APP200400114(0)

PATIENT
  Age: 82 Year
  Sex: Female
  Weight: 74.3899 kg

DRUGS (33)
  1. VANCOMYCIN HYDROCHLORIDE [Suspect]
     Indication: ARTHRITIS BACTERIAL
     Dosage: 1 GM (1 GM, 1 IN 1 D), INTRAVENOUS; SUBCUTANEOUS ABSCESS
     Route: 042
     Dates: start: 20031024, end: 20031128
  2. VANCOMYCIN HYDROCHLORIDE [Suspect]
  3. VANCOMYCIN HYDROCHLORIDE [Suspect]
  4. VANCOMYCIN HYDROCHLORIDE [Suspect]
  5. VANCOMYCIN HYDROCHLORIDE [Suspect]
  6. VANCOMYCIN HYDROCHLORIDE [Suspect]
  7. ANCEF [Concomitant]
  8. COMPAZINE [Concomitant]
  9. PHENERGAN [Concomitant]
  10. ZOFRAN [Concomitant]
  11. SENOKOT [Concomitant]
  12. MILK OF MAGNESIA (MAGNESIUM HYDROXIDE) [Concomitant]
  13. FRAGMIN [Concomitant]
  14. COUMADIN [Concomitant]
  15. FERROUS SULFATE TAB [Concomitant]
  16. DEMEROL [Concomitant]
  17. LORTAB [Concomitant]
  18. WYGESIC (APOREX) [Concomitant]
  19. TYLENOL [Concomitant]
  20. ASPIRIN [Concomitant]
  21. PLAVIX [Concomitant]
  22. PEPCID [Concomitant]
  23. TOPROL-XL [Concomitant]
  24. DIGOXIN [Concomitant]
  25. TAMSULOSIN (TAMSULOSIN) [Concomitant]
  26. MACROBID [Concomitant]
  27. ALTACE [Concomitant]
  28. TYLENOL W/ CODEINE NO. 3 [Concomitant]
  29. PERCOCET 5/325 (OXYCOCET) [Concomitant]
  30. ATIVAN [Concomitant]
  31. AMBIEN [Concomitant]
  32. CIPRO [Concomitant]
  33. ATENOLOL [Concomitant]

REACTIONS (1)
  - GRANULOCYTOPENIA [None]
